FAERS Safety Report 24644986 (Version 1)
Quarter: 2024Q4

REPORT INFORMATION
  Report Type: Spontaneous
  Country: JP (occurrence: JP)
  Receive Date: 20241121
  Receipt Date: 20241121
  Transmission Date: 20250115
  Serious: Yes (Other)
  Sender: GE HEALTHCARE
  Company Number: JP-GEHPL-2024JSU013173AA

PATIENT
  Age: 17 Year
  Weight: 76 kg

DRUGS (1)
  1. OMNIPAQUE [Suspect]
     Active Substance: IOHEXOL
     Indication: Diagnostic procedure
     Dosage: 100 ML, TOTAL
     Route: 042
     Dates: start: 20241022, end: 20241022

REACTIONS (6)
  - Sneezing [Recovering/Resolving]
  - Pruritus [Recovering/Resolving]
  - Urticaria [Recovering/Resolving]
  - Conjunctival hyperaemia [Recovering/Resolving]
  - Erythema of eyelid [Recovering/Resolving]
  - Blood pressure increased [Recovered/Resolved]

NARRATIVE: CASE EVENT DATE: 20241022
